FAERS Safety Report 7470109-7 (Version None)
Quarter: 2011Q2

REPORT INFORMATION
  Report Type: 
  Country: None (occurrence: None)
  Receive Date: 20110510
  Receipt Date: 20110503
  Transmission Date: 20111010
  Serious: Yes (Hospitalization)
  Sender: FDA-Public Use
  Company Number: A0889290A

PATIENT
  Age: 49 Year
  Sex: Female
  Weight: 95.9 kg

DRUGS (13)
  1. MAXZIDE [Concomitant]
  2. LEXAPRO [Concomitant]
  3. METFORMIN HCL [Concomitant]
  4. AVANDIA [Suspect]
     Indication: DIABETES MELLITUS
     Dosage: 4MG PER DAY
     Route: 048
     Dates: start: 20010101
  5. PREVACID [Concomitant]
  6. PAXIL [Concomitant]
  7. PRAVACHOL [Concomitant]
  8. POTASSIUM CHLORIDE [Concomitant]
  9. GLUCOPHAGE [Concomitant]
  10. LASIX [Concomitant]
  11. ATACAND [Concomitant]
  12. NORVASC [Concomitant]
  13. PLAVIX [Concomitant]

REACTIONS (2)
  - ISCHAEMIC STROKE [None]
  - TRANSIENT ISCHAEMIC ATTACK [None]
